FAERS Safety Report 4480199-1 (Version None)
Quarter: 2004Q4

REPORT INFORMATION
  Report Type: 
  Country: None (occurrence: None)
  Receive Date: 20041020
  Receipt Date: 20041014
  Transmission Date: 20050328
  Serious: Yes (Hospitalization)
  Sender: FDA-Public Use
  Company Number: GB-MERCK-0410GBR00164

PATIENT
  Age: 66 Year
  Sex: Female
  Weight: 87 kg

DRUGS (5)
  1. VIOXX [Suspect]
     Indication: CHEST WALL PAIN
     Route: 048
     Dates: start: 20040917, end: 20040930
  2. TAMOXIFEN CITRATE [Concomitant]
     Indication: BREAST CANCER
     Route: 048
     Dates: start: 20010201
  3. LANSOPRAZOLE [Concomitant]
     Indication: HIATUS HERNIA
     Route: 048
     Dates: start: 19980101
  4. ACETAMINOPHEN [Concomitant]
     Indication: ARTHRALGIA
     Route: 048
     Dates: start: 20030101
  5. FUROSEMIDE [Concomitant]
     Indication: DYSPNOEA
     Route: 048
     Dates: start: 20040917

REACTIONS (1)
  - DYSPNOEA [None]
